FAERS Safety Report 13910691 (Version 1)
Quarter: 2017Q3

REPORT INFORMATION
  Report Type: Spontaneous
  Country: US (occurrence: US)
  Receive Date: 20170828
  Receipt Date: 20170828
  Transmission Date: 20171127
  Serious: Yes (Other)
  Sender: FDA-Public Use
  Company Number: US-PFIZER INC-2017364742

PATIENT
  Sex: Male

DRUGS (2)
  1. LYRICA [Suspect]
     Active Substance: PREGABALIN
     Indication: FIBROMYALGIA
     Dosage: 200 MG, UNK
  2. LYRICA [Suspect]
     Active Substance: PREGABALIN
     Indication: NEUROPATHY PERIPHERAL
     Dosage: 150 MG, UNK
     Dates: start: 2009

REACTIONS (7)
  - Condition aggravated [Unknown]
  - Blepharitis [Unknown]
  - Anxiety [Unknown]
  - Vision blurred [Unknown]
  - Fatigue [Unknown]
  - Sjogren^s syndrome [Unknown]
  - Dry eye [Unknown]
